FAERS Safety Report 4701885-1 (Version None)
Quarter: 2005Q2

REPORT INFORMATION
  Report Type: 
  Country: None (occurrence: None)
  Receive Date: 20050627
  Receipt Date: 20050623
  Transmission Date: 20051028
  Serious: Yes (Death)
  Sender: FDA-Public Use
  Company Number: 212910

PATIENT
  Age: 18 Year
  Sex: Male
  Weight: 60.4 kg

DRUGS (3)
  1. NUTROPIN DEPOT [Suspect]
     Indication: PRADER-WILLI SYNDROME
     Dosage: 0.6 ML, 2/MONTH, SUBCUTANEOUS
     Route: 058
     Dates: end: 20031210
  2. ACTONEL (RISEDROANTE SODIUM) [Concomitant]
  3. ZYPREXA [Concomitant]

REACTIONS (1)
  - SUDDEN DEATH [None]
